FAERS Safety Report 8177841 (Version 3)
Quarter: 2012Q4

REPORT INFORMATION
  Report Type: 
  Country: US (occurrence: US)
  Receive Date: 20111012
  Receipt Date: 20121108
  Transmission Date: 20130627
  Serious: Yes (Hospitalization, Other)
  Sender: FDA-Public Use
  Company Number: US-PURDUE-USA-2011-0075758

PATIENT
  Age: 52 Year
  Sex: Female

DRUGS (4)
  1. OXYCONTIN (NDA 22-272) [Suspect]
     Indication: PAIN
     Dosage: 20 mg, tid
     Route: 048
     Dates: start: 201101, end: 20110930
  2. OXYCONTIN (NDA 22-272) [Suspect]
     Dosage: 20 mg, tid
     Route: 048
     Dates: start: 20110929, end: 20111002
  3. OXYCONTIN (NDA 22-272) [Suspect]
     Dosage: 40 mg, UNK
     Route: 048
     Dates: start: 201009
  4. OXYCODONE HCL IMMEDIATE RELEASE (91-490) [Concomitant]
     Indication: BREAKTHROUGH PAIN
     Dosage: 10 mg, UNK
     Route: 048
     Dates: start: 201009

REACTIONS (8)
  - Breast cancer [Recovered/Resolved]
  - Respiratory disorder [Recovered/Resolved]
  - Irritability [Recovered/Resolved]
  - Urticaria [Recovered/Resolved]
  - Swelling [Recovered/Resolved]
  - Pruritus [Recovered/Resolved]
  - Nausea [Recovered/Resolved]
  - Drug ineffective [Recovered/Resolved]
